FAERS Safety Report 6759444-5 (Version None)
Quarter: 2010Q2

REPORT INFORMATION
  Report Type: 
  Country: None (occurrence: None)
  Receive Date: 20100603
  Receipt Date: 20100521
  Transmission Date: 20101027
  Serious: Yes (Hospitalization)
  Sender: FDA-Public Use
  Company Number: AX209-10-0245

PATIENT
  Age: 72 Year
  Sex: Male

DRUGS (10)
  1. ABRAXANE [Suspect]
     Indication: TRANSITIONAL CELL CARCINOMA
     Dosage: (504 MG)
     Dates: start: 20100422
  2. CARBOPLATIN [Suspect]
     Indication: TRANSITIONAL CELL CARCINOMA
     Dosage: (450 MG)
     Dates: start: 20100422
  3. GEMCITABINE [Suspect]
     Indication: TRANSITIONAL CELL CARCINOMA
     Dosage: (1552 MG)
     Dates: start: 20100422
  4. ALLOPURINOL [Concomitant]
  5. CALCIUM CARBONATE [Concomitant]
  6. METOPROLOL SUCCINATE [Concomitant]
  7. OLMESARTAN (OLMESARTAN MEDOXOMIL) [Concomitant]
  8. OMEPRAZOLE [Concomitant]
  9. SIMVASTATIN [Concomitant]
  10. ASPARTAME (ASPARTAME) [Concomitant]

REACTIONS (1)
  - INAPPROPRIATE ANTIDIURETIC HORMONE SECRETION [None]
